FAERS Safety Report 15133148 (Version 1)
Quarter: 2018Q3

REPORT INFORMATION
  Report Type: Spontaneous
  Country: US (occurrence: US)
  Receive Date: 20180712
  Receipt Date: 20180712
  Transmission Date: 20181010
  Serious: Yes (Other)
  Sender: FDA-Public Use
  Company Number: US-SUN PHARMACEUTICAL INDUSTRIES LTD-2018US-160872

PATIENT
  Age: 20 Year
  Sex: Male
  Weight: 71.66 kg

DRUGS (3)
  1. ABSORICA [Suspect]
     Active Substance: ISOTRETINOIN
     Indication: ACNE CYSTIC
     Dosage: 40 MG, DAILY
     Route: 048
     Dates: start: 20170717, end: 20170815
  2. ABSORICA [Suspect]
     Active Substance: ISOTRETINOIN
     Dosage: 40 MG, DAILY
     Route: 048
     Dates: start: 20171024, end: 20171103
  3. ABSORICA [Suspect]
     Active Substance: ISOTRETINOIN
     Dosage: 40 MG, BID
     Route: 048
     Dates: start: 20170816, end: 20171023

REACTIONS (5)
  - Seizure [Unknown]
  - Off label use [Recovered/Resolved]
  - Dry skin [Recovering/Resolving]
  - Migraine [Not Recovered/Not Resolved]
  - Off label use [Recovered/Resolved]

NARRATIVE: CASE EVENT DATE: 20170717
